FAERS Safety Report 8456061-6 (Version None)
Quarter: 2012Q2

REPORT INFORMATION
  Report Type: 
  Country: None (occurrence: None)
  Receive Date: 20120621
  Receipt Date: 20120614
  Transmission Date: 20120825
  Serious: Yes (Life-Threatening, Disabling, Other)
  Sender: FDA-Public Use
  Company Number: PHHY2012QA051573

PATIENT
  Sex: Male

DRUGS (4)
  1. STALEVO 100 [Suspect]
     Dosage: 100 MG, BID
  2. STALEVO 100 [Suspect]
     Indication: DRUG EFFECT DECREASED
     Dosage: 100 MG, 5QD
  3. SINEMET [Concomitant]
     Dosage: 100 MG, TID
  4. PRAMIPEXOLE DIHYDROCHLORIDE [Concomitant]
     Indication: PARKINSON'S DISEASE
     Dosage: 18 MG/DAY

REACTIONS (2)
  - AGGRESSION [None]
  - PSYCHOTIC DISORDER [None]
